FAERS Safety Report 21730773 (Version 2)
Quarter: 2022Q4

REPORT INFORMATION
  Report Type: Report from Study
  Country: BR (occurrence: BR)
  Receive Date: 20221215
  Receipt Date: 20221220
  Transmission Date: 20230112
  Serious: Yes (Other)
  Sender: FDA-Public Use
  Company Number: BR-ABBVIE-4235559

PATIENT
  Age: 58 Year
  Sex: Female

DRUGS (2)
  1. RINVOQ [Suspect]
     Active Substance: UPADACITINIB
     Indication: Rheumatoid arthritis
     Dosage: STARTED MORE THAN ONE YEAR AGO
     Route: 048
  2. LEFLUNOMIDE [Concomitant]
     Active Substance: LEFLUNOMIDE
     Indication: Product used for unknown indication

REACTIONS (18)
  - Intervertebral disc protrusion [Unknown]
  - Lipids increased [Unknown]
  - Musculoskeletal stiffness [Unknown]
  - Anxiety [Recovered/Resolved]
  - Hernia [Unknown]
  - Blood zinc increased [Unknown]
  - Gamma-glutamyltransferase increased [Unknown]
  - Procedural pain [Unknown]
  - Hypoaesthesia [Unknown]
  - Joint swelling [Unknown]
  - Blood cholesterol increased [Unknown]
  - Vitamin C decreased [Unknown]
  - Blood urea increased [Unknown]
  - Unevaluable event [Recovered/Resolved]
  - Pain [Recovered/Resolved]
  - Emotional distress [Unknown]
  - Demyelination [Unknown]
  - Pain [Unknown]

NARRATIVE: CASE EVENT DATE: 20220901
